FAERS Safety Report 16773067 (Version 2)
Quarter: 2019Q3

REPORT INFORMATION
  Report Type: Spontaneous
  Country: US (occurrence: US)
  Receive Date: 20190904
  Receipt Date: 20190910
  Transmission Date: 20191005
  Serious: Yes (Death, Hospitalization, Other)
  Sender: FDA-Public Use
  Company Number: US-VALIDUS PHARMACEUTICALS LLC-US-2019VAL000462

PATIENT

DRUGS (2)
  1. FUROSEMIDE. [Suspect]
     Active Substance: FUROSEMIDE
     Indication: HYPERMAGNESAEMIA
     Dosage: UNK
     Route: 042
  2. CALCIUM GLUCONATE. [Suspect]
     Active Substance: CALCIUM GLUCONATE
     Indication: HYPERMAGNESAEMIA
     Dosage: 2 G, UNK
     Route: 042

REACTIONS (6)
  - Pulseless electrical activity [Fatal]
  - Arrhythmia [Fatal]
  - Necrosis ischaemic [Fatal]
  - Sepsis [Fatal]
  - Cardiac arrest [Fatal]
  - Multiple organ dysfunction syndrome [Fatal]
